FAERS Safety Report 22315592 (Version 4)
Quarter: 2025Q2

REPORT INFORMATION
  Report Type: Spontaneous
  Country: US (occurrence: US)
  Receive Date: 20230512
  Receipt Date: 20250611
  Transmission Date: 20250716
  Serious: No
  Sender: PFIZER
  Company Number: US-PFIZER INC-202100958383

PATIENT
  Age: 68 Year
  Sex: Female

DRUGS (1)
  1. XELJANZ XR [Suspect]
     Active Substance: TOFACITINIB CITRATE
     Dosage: 11 MG, DAILY FOR 90 DAYS
     Route: 048

REACTIONS (4)
  - Alanine aminotransferase increased [Unknown]
  - Back pain [Unknown]
  - Arthralgia [Unknown]
  - Dysgraphia [Unknown]
